FAERS Safety Report 14581901 (Version 2)
Quarter: 2018Q1

REPORT INFORMATION
  Report Type: Spontaneous
  Country: JP (occurrence: JP)
  Receive Date: 20180228
  Receipt Date: 20180309
  Transmission Date: 20180509
  Serious: Yes (Other)
  Sender: FDA-Public Use
  Company Number: JP-JNJFOC-20180234193

PATIENT
  Age: 91 Year
  Sex: Female

DRUGS (6)
  1. TRAMCET [Suspect]
     Active Substance: ACETAMINOPHEN\TRAMADOL
     Indication: PAIN
     Route: 048
     Dates: start: 201708, end: 20180219
  2. AMLODIPINE  BESILATE [Concomitant]
     Active Substance: AMLODIPINE BESYLATE
     Route: 048
  3. TRAMCET [Suspect]
     Active Substance: ACETAMINOPHEN\TRAMADOL
     Indication: PAIN
     Route: 048
     Dates: start: 20170710, end: 201708
  4. OLMESARTAN MEDOXOMIL. [Concomitant]
     Active Substance: OLMESARTAN MEDOXOMIL
     Route: 048
  5. FERROMIA [Concomitant]
     Active Substance: SODIUM FERROUS CITRATE
     Route: 048
  6. LYRICA [Concomitant]
     Active Substance: PREGABALIN
     Route: 048

REACTIONS (1)
  - Gastric ulcer haemorrhage [Unknown]

NARRATIVE: CASE EVENT DATE: 20180219
